FAERS Safety Report 7710930-0 (Version None)
Quarter: 2011Q3

REPORT INFORMATION
  Report Type: 
  Country: None (occurrence: None)
  Receive Date: 20110825
  Receipt Date: 20110816
  Transmission Date: 20111222
  Serious: Yes (Hospitalization)
  Sender: FDA-Public Use
  Company Number: US-ASTRAZENECA-2010SE61359

PATIENT
  Age: 72 Year
  Sex: Female

DRUGS (1)
  1. NEXIUM [Suspect]
     Route: 048

REACTIONS (9)
  - FALL [None]
  - DIABETES MELLITUS [None]
  - JOINT INJURY [None]
  - DRUG DOSE OMISSION [None]
  - INFECTION [None]
  - KNEE OPERATION [None]
  - PAIN IN EXTREMITY [None]
  - MALAISE [None]
  - DEAFNESS UNILATERAL [None]
